FAERS Safety Report 18980324 (Version 1)
Quarter: 2021Q1

REPORT INFORMATION
  Report Type: Report from Study
  Country: US (occurrence: US)
  Receive Date: 20210308
  Receipt Date: 20210308
  Transmission Date: 20210420
  Serious: Yes (Death)
  Sender: FDA-Public Use
  Company Number: US-BAYER-2021-086385

PATIENT

DRUGS (3)
  1. HEPARIN [Interacting]
     Active Substance: HEPARIN SODIUM
  2. ASPIRIN 325 MG [Suspect]
     Active Substance: ASPIRIN
     Indication: THERAPEUTIC EMBOLISATION
  3. CLOPIDOGREL [Interacting]
     Active Substance: CLOPIDOGREL BISULFATE

REACTIONS (4)
  - Subarachnoid haemorrhage [Fatal]
  - Labelled drug-drug interaction medication error [Fatal]
  - Off label use [None]
  - Product use in unapproved indication [None]
